FAERS Safety Report 7900935-9 (Version None)
Quarter: 2011Q4

REPORT INFORMATION
  Report Type: 
  Country: None (occurrence: None)
  Receive Date: 20111108
  Receipt Date: 20111024
  Transmission Date: 20120403
  Serious: Yes (Death, Life-Threatening, Hospitalization, Other)
  Sender: FDA-Public Use
  Company Number: CA-ELI_LILLY_AND_COMPANY-CA201110006125

PATIENT
  Sex: Female

DRUGS (17)
  1. ZYPREXA [Suspect]
     Dosage: 10 MG, UNK
  2. ZYPREXA [Suspect]
     Dosage: 10 MG, UNK
  3. ZYPREXA [Suspect]
     Dosage: 15 MG, UNK
  4. ENALAPRIL MALEATE [Concomitant]
  5. COUMADIN [Concomitant]
  6. METOPROLOL [Concomitant]
  7. HYDROCHLOROTHIAZIDE [Concomitant]
  8. ZYPREXA [Suspect]
     Dosage: 15 MG, UNK
  9. TRAZODONE HYDROCHLORIDE [Concomitant]
  10. ZYPREXA [Suspect]
     Dosage: 5 MG, UNK
  11. ZYPREXA [Suspect]
     Dosage: 5 MG, UNK
  12. HALDOL [Concomitant]
  13. CLONAZEPAM [Concomitant]
  14. RISPERIDONE [Concomitant]
  15. SEROQUEL [Concomitant]
  16. VALPROATE SODIUM [Concomitant]
  17. ASPIRIN [Concomitant]

REACTIONS (9)
  - GLAUCOMA [None]
  - WOUND INFECTION STAPHYLOCOCCAL [None]
  - ARTERIOSCLEROSIS [None]
  - DIABETES MELLITUS [None]
  - DEATH [None]
  - CARDIAC ARREST [None]
  - MYOCARDIAL INFARCTION [None]
  - HYPOXIC-ISCHAEMIC ENCEPHALOPATHY [None]
  - BLOOD CHOLESTEROL INCREASED [None]
